FAERS Safety Report 4822334-9 (Version None)
Quarter: 2005Q4

REPORT INFORMATION
  Report Type: 
  Country: None (occurrence: None)
  Receive Date: 20051103
  Receipt Date: 20051017
  Transmission Date: 20060501
  Serious: Yes (Other)
  Sender: FDA-Public Use
  Company Number: 2005BH002298

PATIENT
  Age: 16 Year
  Sex: Male

DRUGS (3)
  1. ERYTHROMYCIN [Suspect]
     Indication: ACNE
     Dosage: 999 MG; EVERY DAY
  2. BUPROPION HCL [Suspect]
     Indication: DEPRESSION
     Dosage: 100 MG; 2X A DAY
  3. METHYLPHENIDATE HCL [Suspect]
     Indication: ATTENTION DEFICIT/HYPERACTIVITY DISORDER
     Dosage: 30 MG; 2X A DAY

REACTIONS (3)
  - ACUTE MYOCARDIAL INFARCTION [None]
  - DRUG INTERACTION INHIBITION [None]
  - DRUG LEVEL INCREASED [None]
